FAERS Safety Report 5444274-7 (Version None)
Quarter: 2007Q3

REPORT INFORMATION
  Report Type: 
  Country: None (occurrence: None)
  Receive Date: 20070904
  Receipt Date: 20070904
  Transmission Date: 20080115
  Serious: Yes (Other)
  Sender: FDA-Public Use
  Company Number: None

PATIENT
  Sex: Female
  Weight: 39.0093 kg

DRUGS (4)
  1. MORPHINE SULFATE [Suspect]
     Indication: HERPES ZOSTER
     Dosage: 15 MG 1.5 TABLETS/DAY PO
     Route: 048
     Dates: start: 20070718, end: 20070720
  2. MORPHINE SULFATE [Suspect]
     Indication: OSTEOPOROSIS
     Dosage: 15 MG 1.5 TABLETS/DAY PO
     Route: 048
     Dates: start: 20070718, end: 20070720
  3. MIRALAX [Concomitant]
  4. PROBIOTICS [Concomitant]

REACTIONS (2)
  - DYSGEUSIA [None]
  - GASTROINTESTINAL DISORDER [None]
